FAERS Safety Report 11611587 (Version 2)
Quarter: 2015Q4

REPORT INFORMATION
  Report Type: Spontaneous
  Country: AT (occurrence: AT)
  Receive Date: 20151008
  Receipt Date: 20151016
  Transmission Date: 20160304
  Serious: Yes (Hospitalization)
  Sender: FDA-Public Use
  Company Number: AT-ASTRAZENECA-2015SE94356

PATIENT
  Sex: Female
  Weight: 60 kg

DRUGS (2)
  1. PULMICORT RESPULES [Suspect]
     Active Substance: BUDESONIDE
     Route: 055
  2. PULMICORT RESPULES [Suspect]
     Active Substance: BUDESONIDE
     Route: 048

REACTIONS (1)
  - Incorrect route of drug administration [Unknown]
